FAERS Safety Report 9154605 (Version 1)
Quarter: 2013Q1

REPORT INFORMATION
  Report Type: Report from Study
  Country: CO (occurrence: CO)
  Receive Date: 20130311
  Receipt Date: 20130311
  Transmission Date: 20140127
  Serious: Yes (Death, Life-Threatening, Hospitalization)
  Sender: FDA-Public Use
  Company Number: CO-SANOFI-AVENTIS-2013SA023334

PATIENT
  Age: 78 Year
  Sex: Male

DRUGS (1)
  1. LANTUS [Suspect]
     Indication: TYPE 2 DIABETES MELLITUS
     Route: 058
     Dates: end: 20130123

REACTIONS (6)
  - Acute myocardial infarction [Fatal]
  - Hyperglycaemic hyperosmolar nonketotic syndrome [Recovered/Resolved]
  - Hypoglycaemia [Not Recovered/Not Resolved]
  - Dysarthria [Not Recovered/Not Resolved]
  - Somnolence [Not Recovered/Not Resolved]
  - Gastric ulcer [Recovered/Resolved]
